FAERS Safety Report 11076095 (Version 1)
Quarter: 2015Q2

REPORT INFORMATION
  Report Type: Spontaneous
  Country: IN (occurrence: IN)
  Receive Date: 20150429
  Receipt Date: 20150429
  Transmission Date: 20150821
  Serious: Yes (Death, Other)
  Sender: FDA-Public Use
  Company Number: PHHY2015IN050256

PATIENT
  Age: 33 Year
  Sex: Female

DRUGS (1)
  1. METHOTREXATE [Suspect]
     Active Substance: METHOTREXATE
     Indication: RHEUMATOID ARTHRITIS
     Dosage: 7.5 MG, TWICE A WEEK
     Route: 065

REACTIONS (14)
  - Leukocytosis [Unknown]
  - Hepatotoxicity [Fatal]
  - Mucosal inflammation [Unknown]
  - Myocarditis [Fatal]
  - Jaundice [Fatal]
  - Dyspnoea [Fatal]
  - Thrombocytopenia [Unknown]
  - Mouth ulceration [Unknown]
  - Pneumonitis [Fatal]
  - Crepitations [Fatal]
  - Diffuse alveolar damage [Fatal]
  - Hepatic steatosis [Fatal]
  - Anaemia [Unknown]
  - Liver function test abnormal [Fatal]
